FAERS Safety Report 13058342 (Version 2)
Quarter: 2017Q1

REPORT INFORMATION
  Report Type: Spontaneous
  Country: US (occurrence: US)
  Receive Date: 20161223
  Receipt Date: 20170202
  Transmission Date: 20170428
  Serious: Yes (Other)
  Sender: FDA-Public Use
  Company Number: PHEH2016US032753

PATIENT
  Sex: Male

DRUGS (1)
  1. OXCARBAZEPINE. [Suspect]
     Active Substance: OXCARBAZEPINE
     Indication: SEIZURE
     Dosage: PATIENT RECEIVED FOUR 250ML BOTTLES
     Route: 065

REACTIONS (4)
  - Product physical consistency issue [Unknown]
  - Product colour issue [Unknown]
  - Product taste abnormal [Unknown]
  - Seizure like phenomena [Recovered/Resolved]
